FAERS Safety Report 4407949-4 (Version None)
Quarter: 2004Q3

REPORT INFORMATION
  Report Type: 
  Country: None (occurrence: None)
  Receive Date: 20040716
  Receipt Date: 20400709
  Transmission Date: 20050211
  Serious: Yes (Hospitalization)
  Sender: FDA-Public Use
  Company Number: 02P-087-0201278-00

PATIENT
  Age: 26 Year
  Sex: Female

DRUGS (3)
  1. ISOPTIN [Suspect]
     Dosage: MG, PER ORAL
     Route: 048
  2. ISOPTIN [Suspect]
     Dosage: MG, INTRAVENOUS
     Route: 042
  3. CIPRALAN [Suspect]

REACTIONS (5)
  - BLOOD PRESSURE DECREASED [None]
  - BUNDLE BRANCH BLOCK RIGHT [None]
  - DRUG EXPOSURE DURING PREGNANCY [None]
  - FOETAL HEART RATE DECREASED [None]
  - SUPRAVENTRICULAR TACHYCARDIA [None]
